FAERS Safety Report 16959962 (Version 1)
Quarter: 2019Q4

REPORT INFORMATION
  Report Type: Spontaneous
  Country: US (occurrence: US)
  Receive Date: 20191025
  Receipt Date: 20191025
  Transmission Date: 20200122
  Serious: Yes (Hospitalization, Other)
  Sender: FDA-Public Use
  Company Number: US-RECORDATI RARE DISEASES-2076038

PATIENT
  Age: 24 Month
  Sex: Male

DRUGS (2)
  1. CARBAGLU [Suspect]
     Active Substance: CARGLUMIC ACID
  2. CARBAGLU [Suspect]
     Active Substance: CARGLUMIC ACID
     Indication: METHYLMALONIC ACIDURIA

REACTIONS (4)
  - Off label use [Unknown]
  - Seizure [Unknown]
  - Device dependence [Unknown]
  - Gastrooesophageal reflux disease [Unknown]
